FAERS Safety Report 12405757 (Version 1)
Quarter: 2016Q2

REPORT INFORMATION
  Report Type: Spontaneous
  Country: US (occurrence: None)
  Receive Date: 20160525
  Receipt Date: 20160525
  Transmission Date: 20160815
  Serious: Yes (Life-Threatening, Hospitalization, Disabling)
  Sender: FDA-Public Use
  Company Number: None

PATIENT
  Age: 44 Year
  Sex: Female
  Weight: 63.5 kg

DRUGS (7)
  1. SINGULAIR [Concomitant]
     Active Substance: MONTELUKAST SODIUM
  2. ZYRTEC [Concomitant]
     Active Substance: CETIRIZINE HYDROCHLORIDE
  3. ZANTAC [Concomitant]
     Active Substance: RANITIDINE HYDROCHLORIDE
  4. DOXEPIN [Concomitant]
     Active Substance: DOXEPIN
  5. NEUTROGENA SENSITIVE SKIN SUNSCREEN BROAD SPECTRUM SPF60 PLUS [Suspect]
     Active Substance: TITANIUM DIOXIDE\ZINC OXIDE
     Indication: PROPHYLAXIS
     Route: 061
     Dates: start: 20150823, end: 20150826
  6. NEUTROGENA SENSITIVE SKIN SUNSCREEN BROAD SPECTRUM SPF60 PLUS [Suspect]
     Active Substance: TITANIUM DIOXIDE\ZINC OXIDE
     Indication: PHOTOSENSITIVITY REACTION
     Route: 061
     Dates: start: 20150823, end: 20150826
  7. STERIODS [Concomitant]
     Active Substance: UNSPECIFIED INGREDIENT

REACTIONS (6)
  - Product formulation issue [None]
  - Swollen tongue [None]
  - Angioedema [None]
  - Urticaria [None]
  - Reaction to drug excipients [None]
  - Lip swelling [None]

NARRATIVE: CASE EVENT DATE: 20150824
